FAERS Safety Report 26198618 (Version 1)
Quarter: 2025Q4

REPORT INFORMATION
  Report Type: Spontaneous
  Country: US (occurrence: US)
  Receive Date: 20251224
  Receipt Date: 20251224
  Transmission Date: 20260117
  Serious: Yes (Hospitalization, Other)
  Sender: SANOFI AVENTIS
  Company Number: US-SA-2025SA375613

PATIENT
  Age: 83 Year
  Sex: Female

DRUGS (6)
  1. WAYRILZ [Suspect]
     Active Substance: RILZABRUTINIB
     Indication: Immune thrombocytopenia
     Dosage: 400 MG, BID
     Route: 048
  2. LEVOTHYROXINE [Concomitant]
     Active Substance: LEVOTHYROXINE
  3. LISINOPRIL [Concomitant]
     Active Substance: LISINOPRIL
     Dosage: UNK
  4. Centrum adults [Concomitant]
  5. ADVIL [Concomitant]
     Active Substance: IBUPROFEN
  6. DILTIAZEM [Concomitant]
     Active Substance: DILTIAZEM

REACTIONS (6)
  - Pulmonary oedema [Unknown]
  - Swelling face [Unknown]
  - Pneumonia [Unknown]
  - Asthenia [Unknown]
  - Muscular weakness [Unknown]
  - Dizziness [Unknown]
